FAERS Safety Report 6684508-4 (Version None)
Quarter: 2010Q2

REPORT INFORMATION
  Report Type: 
  Country: None (occurrence: None)
  Receive Date: 20100416
  Receipt Date: 20100409
  Transmission Date: 20101027
  Serious: Yes (Hospitalization)
  Sender: FDA-Public Use
  Company Number: JP-ROCHE-608088

PATIENT
  Sex: Male
  Weight: 51.7 kg

DRUGS (11)
  1. TOCILIZUMAB [Suspect]
     Indication: RHEUMATOID ARTHRITIS
     Route: 041
     Dates: start: 20081111, end: 20081111
  2. TOCILIZUMAB [Suspect]
     Route: 041
     Dates: start: 20081224, end: 20081224
  3. PREDNISOLONE [Suspect]
     Indication: RHEUMATOID ARTHRITIS
     Dosage: FORM: ORAL FORMULATION (NOT OTHERWISE SPECIFIED).
     Route: 048
     Dates: start: 20081110, end: 20081125
  4. PREDNISOLONE [Suspect]
     Route: 048
     Dates: start: 20081126, end: 20090302
  5. PREDNISOLONE [Suspect]
     Route: 048
     Dates: start: 20090303
  6. APLACE [Concomitant]
     Route: 048
  7. CANDESARTAN CILEXETIL [Concomitant]
     Route: 048
  8. TAGAMET [Concomitant]
     Dosage: FORM: ORAL FORMULATION (NOT OTHERWISE SPECIFIED).
     Route: 048
  9. DOGMATYL [Concomitant]
     Dosage: FORM: ORAL FORMULATION (NOT OTHERWISE SPECIFIED).
     Route: 048
  10. LOXONIN [Concomitant]
     Dosage: FORM: ORAL FORMULATION (NOT OTHERWISE SPECIFIED).
     Route: 048
  11. ITRIZOLE [Concomitant]
     Dosage: FORM: PERORAL LIQUID PREPARATION.
     Route: 048
     Dates: start: 20081107, end: 20081224

REACTIONS (2)
  - ANGINA UNSTABLE [None]
  - FEMORAL NECK FRACTURE [None]
